FAERS Safety Report 20932996 (Version 4)
Quarter: 2023Q4

REPORT INFORMATION
  Report Type: Spontaneous
  Country: US (occurrence: US)
  Receive Date: 20220608
  Receipt Date: 20231124
  Transmission Date: 20240110
  Serious: Yes (Disabling, Other)
  Sender: FDA-Public Use
  Company Number: US-REGENERON PHARMACEUTICALS, INC.-2022-30806

PATIENT
  Sex: Male

DRUGS (3)
  1. EYLEA [Suspect]
     Active Substance: AFLIBERCEPT
     Indication: Diabetic retinopathy
     Dosage: 2 MG, EVERY 4 -6 WEEKS (AS NEEDED), INTO LEFT EYE; FORMULATION: UNKNOWN
     Dates: start: 20220223
  2. EYLEA [Suspect]
     Active Substance: AFLIBERCEPT
     Indication: Macular oedema
     Dosage: 2 MG, ONCE, INTO RIGHT EYE; FORMULATION: UNKNOWN
  3. EYLEA [Suspect]
     Active Substance: AFLIBERCEPT
     Indication: Eye haemorrhage

REACTIONS (5)
  - Blindness [Unknown]
  - Cataract [Unknown]
  - Vision blurred [Unknown]
  - Therapeutic response shortened [Unknown]
  - Off label use [Unknown]

NARRATIVE: CASE EVENT DATE: 20220101
